FAERS Safety Report 22643925 (Version 3)
Quarter: 2023Q2

REPORT INFORMATION
  Report Type: Spontaneous
  Country: GR (occurrence: GR)
  Receive Date: 20230627
  Receipt Date: 20230630
  Transmission Date: 20230721
  Serious: No
  Sender: FDA-Public Use
  Company Number: GR-PFIZER INC-PV202300107428

PATIENT
  Age: 2 Year
  Sex: Male
  Weight: 9.2 kg

DRUGS (1)
  1. GENOTROPIN [Suspect]
     Active Substance: SOMATROPIN
     Indication: Growth hormone deficiency
     Dosage: UNK / 5.3 MG PEN
     Route: 058
     Dates: start: 20230529

REACTIONS (2)
  - Wrong technique in device usage process [Unknown]
  - Device leakage [Unknown]
